FAERS Safety Report 9134622 (Version 1)
Quarter: 2013Q1

REPORT INFORMATION
  Report Type: Spontaneous
  Country: US (occurrence: US)
  Receive Date: 20130304
  Receipt Date: 20130304
  Transmission Date: 20140127
  Serious: No
  Sender: FDA-Public Use
  Company Number: US-PFIZER INC-2013071475

PATIENT
  Age: 59 Year
  Sex: Female
  Weight: 132 kg

DRUGS (10)
  1. CELEBREX [Suspect]
     Indication: PAIN IN EXTREMITY
     Dosage: 200 MG, 1X/DAY
     Route: 048
     Dates: end: 201302
  2. CELEBREX [Suspect]
     Indication: INFLAMMATION
  3. CELEBREX [Suspect]
     Indication: ARTHRALGIA
  4. CELEBREX [Suspect]
     Indication: MUSCULOSKELETAL PAIN
  5. LEVEMIR [Concomitant]
     Indication: DIABETES MELLITUS
     Dosage: UNK
  6. DIOVAN [Concomitant]
     Dosage: UNK
  7. MIRAPEX [Concomitant]
     Indication: RESTLESS LEGS SYNDROME
     Dosage: UNK
  8. ALDACTAZIDE [Concomitant]
     Dosage: UNK
  9. NEURONTIN [Concomitant]
     Dosage: UNK
  10. DETROL LA [Concomitant]
     Dosage: UNK

REACTIONS (3)
  - Arthralgia [Not Recovered/Not Resolved]
  - Musculoskeletal pain [Not Recovered/Not Resolved]
  - Exostosis [Unknown]
